FAERS Safety Report 23312027 (Version 1)
Quarter: 2023Q4

REPORT INFORMATION
  Report Type: Spontaneous
  Country: ES (occurrence: ES)
  Receive Date: 20231219
  Receipt Date: 20231219
  Transmission Date: 20240109
  Serious: Yes (Hospitalization)
  Sender: FDA-Public Use
  Company Number: ES-ROCHE-3202101

PATIENT
  Age: 62 Year
  Sex: Male
  Weight: 68 kg

DRUGS (17)
  1. CARBOPLATIN [Suspect]
     Active Substance: CARBOPLATIN
     Indication: Small cell lung cancer extensive stage
     Dosage: 570 MILLIGRAM
     Route: 065
     Dates: start: 20220718
  2. ATEZOLIZUMAB [Suspect]
     Active Substance: ATEZOLIZUMAB
     Indication: Small cell lung cancer extensive stage
     Dosage: START DATE OF MOST RECENT DOSE OF STUDY DRUG PRIOR TO AE: 25/NOV/2022
     Route: 042
     Dates: start: 20220718
  3. ETOPOSIDE [Suspect]
     Active Substance: ETOPOSIDE
     Indication: Small cell lung cancer extensive stage
     Dosage: 350 MILLIGRAM
     Route: 048
     Dates: start: 20220719
  4. ETOPOSIDE [Suspect]
     Active Substance: ETOPOSIDE
     Dosage: 179 MILLIGRAM
     Route: 042
     Dates: start: 20220718
  5. HYDROCORTISONE SODIUM PHOSPHATE [Concomitant]
     Active Substance: HYDROCORTISONE SODIUM PHOSPHATE
     Indication: Product used for unknown indication
     Dosage: UNK
     Route: 065
     Dates: start: 20220809, end: 20220809
  6. DEXAMETHASONE [Concomitant]
     Active Substance: DEXAMETHASONE
     Indication: Product used for unknown indication
     Dosage: 12 MILLIGRAM
     Route: 065
     Dates: start: 20220809, end: 20220809
  7. DEXAMETHASONE [Concomitant]
     Active Substance: DEXAMETHASONE
     Dosage: 12 MILLIGRAM
     Route: 065
     Dates: start: 20220903, end: 20220903
  8. DEXAMETHASONE [Concomitant]
     Active Substance: DEXAMETHASONE
     Dosage: 12 MILLIGRAM
     Route: 065
     Dates: start: 20220902, end: 20220902
  9. DEXAMETHASONE [Concomitant]
     Active Substance: DEXAMETHASONE
     Dosage: SUBSEQUENT DOSE ON 03/SEP/2022 TO 05/SEP/2022 AND 24/SEP/2022 TO 25/SEP/2022
     Route: 065
     Dates: start: 20220810, end: 20220812
  10. DEXAMETHASONE [Concomitant]
     Active Substance: DEXAMETHASONE
     Dosage: SUBSEQUENT ON 23/SEP/2022, 02/SEP/2022
     Route: 065
     Dates: start: 20220809, end: 20220809
  11. IPRATROPIUM BROMIDE [Concomitant]
     Active Substance: IPRATROPIUM BROMIDE\IPRATROPIUM BROMIDE ANHYDROUS
     Indication: Product used for unknown indication
     Dosage: UNK
     Route: 065
     Dates: start: 20220616
  12. LORAZEPAM [Concomitant]
     Active Substance: LORAZEPAM
     Indication: Product used for unknown indication
     Dosage: UNK
     Route: 065
     Dates: start: 20220624
  13. MYCOSTATIN [Concomitant]
     Active Substance: NYSTATIN
     Indication: Product used for unknown indication
     Dosage: UNK
     Route: 065
     Dates: start: 20220724
  14. NETUPITANT [Concomitant]
     Active Substance: NETUPITANT
     Indication: Product used for unknown indication
     Dosage: SUBSEQUENT ON 23/SEP/2022, 02/SEP/2022
     Route: 065
     Dates: start: 20220809, end: 20220809
  15. PALONOSETRON [Concomitant]
     Active Substance: PALONOSETRON
     Indication: Product used for unknown indication
     Dosage: SUBSEQUENT ON 23/SEP/2022, 02/SEP/2022
     Route: 065
     Dates: start: 20220809, end: 20220809
  16. POLARAMINE [Concomitant]
     Active Substance: DEXCHLORPHENIRAMINE MALEATE
     Indication: Product used for unknown indication
     Dosage: UNK
     Route: 065
     Dates: start: 20220809, end: 20220809
  17. ALBUTEROL [Concomitant]
     Active Substance: ALBUTEROL
     Indication: Product used for unknown indication
     Dosage: UNK
     Route: 065
     Dates: start: 20220616

REACTIONS (7)
  - Respiratory tract infection [Recovered/Resolved]
  - Asthenia [Recovering/Resolving]
  - Chest discomfort [Recovered/Resolved]
  - Cough [Recovered/Resolved]
  - Dyspnoea [Recovered/Resolved]
  - Mucosal inflammation [Recovered/Resolved]
  - Pyrexia [Recovered/Resolved]

NARRATIVE: CASE EVENT DATE: 20220724
